FAERS Safety Report 19661196 (Version 1)
Quarter: 2021Q3

REPORT INFORMATION
  Report Type: Spontaneous
  Country: FR (occurrence: FR)
  Receive Date: 20210805
  Receipt Date: 20210805
  Transmission Date: 20211014
  Serious: Yes (Other)
  Sender: FDA-Public Use
  Company Number: FR-PFIZER INC-202100947773

PATIENT
  Age: 16 Year
  Sex: Female

DRUGS (3)
  1. RIVOTRIL [Suspect]
     Active Substance: CLONAZEPAM
     Indication: DRUG DEPENDENCE
     Dosage: 2 DF
     Route: 048
  2. ECSTASY [Suspect]
     Active Substance: MIDOMAFETAMINE
     Indication: DRUG DEPENDENCE
     Dosage: 1 DF
     Route: 048
  3. LYRICA [Suspect]
     Active Substance: PREGABALIN
     Indication: DRUG DEPENDENCE
     Dosage: 2 DF
     Route: 048

REACTIONS (3)
  - Intermittent explosive disorder [Recovered/Resolved]
  - Suspected suicide attempt [Recovered/Resolved]
  - Drug abuse [Unknown]

NARRATIVE: CASE EVENT DATE: 202106
